FAERS Safety Report 4933137-9 (Version None)
Quarter: 2006Q1

REPORT INFORMATION
  Report Type: 
  Country: None (occurrence: None)
  Receive Date: 20060301
  Receipt Date: 20060301
  Transmission Date: 20060701
  Serious: Yes (Other)
  Sender: FDA-Public Use
  Company Number: None

PATIENT
  Age: 20 Year
  Sex: Female
  Weight: 52.1637 kg

DRUGS (1)
  1. ORTHO EVRA [Suspect]
     Indication: CONTRACEPTION
     Dosage: ONE PATCH PER WEEK X 3 WEEKS CHANGE WEEKLY TRANSDERMAL
     Route: 062
     Dates: start: 20050418, end: 20050425

REACTIONS (1)
  - DEEP VEIN THROMBOSIS [None]
